FAERS Safety Report 4383820-1 (Version None)
Quarter: 2004Q2

REPORT INFORMATION
  Report Type: 
  Country: None (occurrence: None)
  Receive Date: 20040608
  Receipt Date: 20031028
  Transmission Date: 20050107
  Serious: Yes (Other)
  Sender: FDA-Public Use
  Company Number: 200313986BCC

PATIENT
  Age: 59 Year
  Sex: Female
  Weight: 76.6579 kg

DRUGS (4)
  1. ALEVE [Suspect]
     Indication: ARTHRALGIA
     Dosage: 440 MG, TOTAL DAILY, ORAL
     Route: 048
     Dates: start: 20030729
  2. MEDICATIONS FOR ARTHRITIS [Concomitant]
  3. MULTI-VITAMIN [Concomitant]
  4. COENZYME [Concomitant]

REACTIONS (2)
  - ALANINE AMINOTRANSFERASE INCREASED [None]
  - GAMMA-GLUTAMYLTRANSFERASE INCREASED [None]
